FAERS Safety Report 20665415 (Version 1)
Quarter: 2022Q2

REPORT INFORMATION
  Report Type: Report from Study
  Country: US (occurrence: US)
  Receive Date: 20220402
  Receipt Date: 20220402
  Transmission Date: 20220720
  Serious: Yes (Congenital Anomaly)
  Sender: FDA-Public Use
  Company Number: US-ABBVIE-22K-163-4341388-00

PATIENT
  Sex: Male

DRUGS (1)
  1. SKYRIZI [Suspect]
     Active Substance: RISANKIZUMAB-RZAA
     Indication: Psoriasis
     Dosage: 1 PEN AT WEEK 0, WEEK 4, THEN EVERY 12 WEEKS THEREAFTER
     Route: 058
     Dates: start: 20220211

REACTIONS (6)
  - Night sweats [Unknown]
  - Pyrexia [Unknown]
  - Fatigue [Unknown]
  - Fatigue [Unknown]
  - Psoriasis [Unknown]
  - Off label use [Unknown]
